FAERS Safety Report 20768811 (Version 1)
Quarter: 2022Q2

REPORT INFORMATION
  Report Type: Spontaneous
  Country: US (occurrence: None)
  Receive Date: 20220428
  Receipt Date: 20220428
  Transmission Date: 20220720
  Serious: Yes (Hospitalization)
  Sender: FDA-Public Use
  Company Number: None

PATIENT
  Age: 66 Year
  Sex: Female
  Weight: 86.91 kg

DRUGS (9)
  1. MEKTOVI [Suspect]
     Active Substance: BINIMETINIB
     Indication: Bone cancer
     Dosage: FREQUENCY : TWICE A DAY;?
     Route: 048
     Dates: start: 20211015
  2. BRAFTOVI [Suspect]
     Active Substance: ENCORAFENIB
     Indication: Bone cancer
     Dosage: FREQUENCY : DAILY;?
     Route: 048
     Dates: start: 20211015
  3. CALCIUM\CHOLECALCIFEROL [Concomitant]
     Active Substance: CALCIUM\CHOLECALCIFEROL
  4. ELIQUIS [Concomitant]
     Active Substance: APIXABAN
  5. HEPARIN [Concomitant]
     Active Substance: HEPARIN SODIUM
  6. IBUPROFEN [Concomitant]
     Active Substance: IBUPROFEN
  7. TRAMADOL [Concomitant]
     Active Substance: TRAMADOL
  8. TYLENOL [Concomitant]
     Active Substance: ACETAMINOPHEN
  9. ZOFRAN [Concomitant]
     Active Substance: ONDANSETRON HYDROCHLORIDE

REACTIONS (1)
  - Adverse drug reaction [None]
